FAERS Safety Report 23685440 (Version 1)
Quarter: 2024Q1

REPORT INFORMATION
  Report Type: Spontaneous
  Country: US (occurrence: US)
  Receive Date: 20240329
  Receipt Date: 20240329
  Transmission Date: 20240410
  Serious: Yes (Other)
  Sender: FDA-Public Use
  Company Number: US-JNJFOC-20240350350

PATIENT
  Age: 61 Year
  Sex: Female
  Weight: 63.56 kg

DRUGS (4)
  1. STELARA [Interacting]
     Active Substance: USTEKINUMAB
     Indication: Colitis ulcerative
     Route: 040
     Dates: start: 20230614
  2. STELARA [Interacting]
     Active Substance: USTEKINUMAB
     Dosage: LATEST DOSE WAS 8 WEEKS AGO ON 22-JAN-2024
     Route: 058
     Dates: start: 20230807
  3. MESALAMINE [Concomitant]
     Active Substance: MESALAMINE
     Dosage: 4 PILLS EVERY MORNING
  4. PREDNISONE [Concomitant]
     Active Substance: PREDNISONE

REACTIONS (8)
  - Foot fracture [Unknown]
  - Arthralgia [Unknown]
  - Fatigue [Recovering/Resolving]
  - Drug interaction [Unknown]
  - Foot deformity [Unknown]
  - Limb injury [Unknown]
  - Blood iron decreased [Unknown]
  - Feeling abnormal [Unknown]

NARRATIVE: CASE EVENT DATE: 20230701
